FAERS Safety Report 18045753 (Version 4)
Quarter: 2020Q4

REPORT INFORMATION
  Report Type: Spontaneous
  Country: JP (occurrence: JP)
  Receive Date: 20200720
  Receipt Date: 20201020
  Transmission Date: 20210113
  Serious: Yes (Death, Hospitalization, Disabling, Other)
  Sender: FDA-Public Use
  Company Number: JP-DSJP-DSJ-2020-119746

PATIENT
  Age: 64 Year
  Sex: Male
  Weight: 86 kg

DRUGS (6)
  1. FEBURIC [Concomitant]
     Active Substance: FEBUXOSTAT
     Indication: HYPERURICAEMIA
     Dosage: 20 MG, QD
     Route: 048
     Dates: start: 20200706, end: 20200709
  2. OMEPRAL                            /00661201/ [Concomitant]
     Active Substance: OMEPRAZOLE
     Indication: GASTRODUODENAL ULCER
     Dosage: 20 MG, BID
     Route: 042
     Dates: start: 20200703
  3. FENTOS [Concomitant]
     Active Substance: FENTANYL
     Indication: CANCER PAIN
     Dosage: 1 MG, QD
     Route: 050
     Dates: start: 20200716
  4. ALBUMIN [Concomitant]
     Active Substance: ALBUMIN HUMAN
     Indication: HYPOALBUMINAEMIA
     Dosage: 12.5 MG, QD
     Route: 041
     Dates: start: 20200705
  5. VANCOMYCIN                         /00314402/ [Concomitant]
     Active Substance: VANCOMYCIN
     Indication: DEVICE RELATED INFECTION
     Dosage: 0.5 G, QD
     Route: 041
     Dates: start: 20200722
  6. ENHERTU [Suspect]
     Active Substance: FAM-TRASTUZUMAB DERUXTECAN-NXKI
     Indication: ADENOCARCINOMA PANCREAS
     Dosage: 300 MG
     Route: 041
     Dates: start: 20200702, end: 20200702

REACTIONS (9)
  - Renal impairment [Unknown]
  - Disease progression [Fatal]
  - Neutropenia [Recovered/Resolved]
  - Malaise [Unknown]
  - Nausea [Unknown]
  - Anaemia [Unknown]
  - White blood cell count decreased [Recovering/Resolving]
  - Thrombocytopenia [Recovered/Resolved]
  - Off label use [Unknown]

NARRATIVE: CASE EVENT DATE: 20200710
